FAERS Safety Report 7339558-1 (Version None)
Quarter: 2011Q1

REPORT INFORMATION
  Report Type: 
  Country: None (occurrence: None)
  Receive Date: 20110308
  Receipt Date: 20110217
  Transmission Date: 20110831
  Serious: No
  Sender: FDA-Public Use
  Company Number: US-AMGEN-USASP2011009512

PATIENT
  Sex: Female

DRUGS (5)
  1. POTASSIUM [Concomitant]
  2. PRILOSEC [Concomitant]
  3. LEVOTHYROXINE [Concomitant]
  4. PROLIA [Suspect]
     Indication: OSTEOPOROSIS POSTMENOPAUSAL
     Dosage: 60 MG, Q6MO
     Dates: start: 20110208
  5. VITAMINS                           /90003601/ [Concomitant]

REACTIONS (5)
  - FEELING ABNORMAL [None]
  - PAIN [None]
  - ARTHRALGIA [None]
  - MUSCLE TIGHTNESS [None]
  - HYPOACUSIS [None]
